FAERS Safety Report 16763139 (Version 2)
Quarter: 2019Q3

REPORT INFORMATION
  Report Type: Spontaneous
  Country: US (occurrence: US)
  Receive Date: 20190902
  Receipt Date: 20190916
  Transmission Date: 20191005
  Serious: Yes (Other)
  Sender: FDA-Public Use
  Company Number: US-HIKMA PHARMACEUTICALS USA INC.-US-H14001-19-04764

PATIENT
  Sex: Male
  Weight: 58.57 kg

DRUGS (1)
  1. DOXYCYCLINE. [Suspect]
     Active Substance: DOXYCYCLINE
     Indication: ACNE
     Route: 048
     Dates: start: 20160524, end: 20160615

REACTIONS (6)
  - Blood testosterone decreased [Recovered/Resolved]
  - Growth retardation [Not Recovered/Not Resolved]
  - Skin striae [Unknown]
  - Tooth development disorder [Unknown]
  - Stress [Unknown]
  - Cortisol increased [Unknown]

NARRATIVE: CASE EVENT DATE: 2016
